FAERS Safety Report 8050633-9 (Version None)
Quarter: 2012Q1

REPORT INFORMATION
  Report Type: 
  Country: None (occurrence: None)
  Receive Date: 20120117
  Receipt Date: 20120117
  Transmission Date: 20120608
  Serious: Yes (Other)
  Sender: FDA-Public Use
  Company Number: None

PATIENT
  Age: 38 Year
  Sex: Female
  Weight: 117.93 kg

DRUGS (1)
  1. EFFEXOR XR [Suspect]
     Indication: DEPRESSION
     Dosage: 1
     Route: 048
     Dates: start: 20010705, end: 20120113

REACTIONS (9)
  - HYPERHIDROSIS [None]
  - PARAESTHESIA [None]
  - ANXIETY [None]
  - BALANCE DISORDER [None]
  - DIZZINESS [None]
  - MOOD SWINGS [None]
  - SUICIDAL IDEATION [None]
  - NIGHTMARE [None]
  - DRUG WITHDRAWAL SYNDROME [None]
